FAERS Safety Report 12310785 (Version 4)
Quarter: 2016Q2

REPORT INFORMATION
  Report Type: Spontaneous
  Country: IT (occurrence: IT)
  Receive Date: 20160427
  Receipt Date: 20160505
  Transmission Date: 20160815
  Serious: Yes (Other)
  Sender: FDA-Public Use
  Company Number: PHHY2016IT053428

PATIENT
  Age: 46 Year
  Sex: Female

DRUGS (12)
  1. TEGRETOL [Suspect]
     Active Substance: CARBAMAZEPINE
     Indication: EPILEPSY
     Dosage: 1000 MG, QD
     Route: 048
     Dates: start: 20140101, end: 20160405
  2. GABAPENTIN. [Suspect]
     Active Substance: GABAPENTIN
     Indication: EPILEPSY
     Dosage: 1200 MG, QD
     Route: 048
     Dates: start: 20140101, end: 20160405
  3. SEROQUEL [Suspect]
     Active Substance: QUETIAPINE FUMARATE
     Indication: SCHIZOPHRENIA
     Dosage: 800 MG, QD
     Route: 048
     Dates: start: 20140101, end: 20160405
  4. LARGACTIL [Suspect]
     Active Substance: CHLORPROMAZINE
     Dosage: 100 MG, QD
     Route: 048
  5. RIVOTRIL [Suspect]
     Active Substance: CLONAZEPAM
     Indication: EPILEPSY
     Dosage: 3 MG, QD
     Route: 048
     Dates: start: 20140101, end: 20160405
  6. NEULEPTIL [Suspect]
     Active Substance: PERICIAZINE
     Indication: ACUTE PSYCHOSIS
     Dosage: 30 MG, QD
     Route: 048
     Dates: start: 20140101, end: 20160405
  7. TEGRETOL [Suspect]
     Active Substance: CARBAMAZEPINE
     Dosage: 1200 MG, QD
     Route: 048
  8. AKINETON [Suspect]
     Active Substance: BIPERIDEN HYDROCHLORIDE
     Indication: TREMOR
     Dosage: 4 MG, QD
     Route: 048
     Dates: start: 20140101, end: 20160405
  9. TALOFEN [Suspect]
     Active Substance: PROMAZINE HYDROCHLORIDE
     Indication: AGITATION
     Dosage: 15 GTT, QOD
     Route: 048
     Dates: start: 20140101, end: 20160405
  10. LARGACTIL [Suspect]
     Active Substance: CHLORPROMAZINE
     Indication: HALLUCINATION, VISUAL
     Dosage: 200 MG, QD
     Route: 048
     Dates: start: 20140101, end: 20160405
  11. SERENASE [Suspect]
     Active Substance: HALOPERIDOL
     Indication: AGITATION
     Dosage: 15 MG, QD
     Route: 048
     Dates: start: 20140101, end: 20160405
  12. RIVOTRIL [Suspect]
     Active Substance: CLONAZEPAM
     Dosage: 2 MG, QD
     Route: 048

REACTIONS (4)
  - Stereotypy [Recovering/Resolving]
  - Confusional state [Recovering/Resolving]
  - Disorganised speech [Recovering/Resolving]
  - Tremor [Recovering/Resolving]

NARRATIVE: CASE EVENT DATE: 20160405
